FAERS Safety Report 5781376-X (Version None)
Quarter: 2008Q2

REPORT INFORMATION
  Report Type: 
  Country: None (occurrence: None)
  Receive Date: 20080619
  Receipt Date: 20080610
  Transmission Date: 20081010
  Serious: Yes (Other)
  Sender: FDA-Public Use
  Company Number: 163-21880-08060819

PATIENT

DRUGS (3)
  1. REVLIMID [Suspect]
     Indication: MYELOFIBROSIS
     Dosage: 10 MG, DAILY, ORAL
     Route: 048
  2. INTERFERON ALPHA [Concomitant]
  3. PREDNISONE TAB [Concomitant]

REACTIONS (5)
  - HAEMOLYTIC ANAEMIA [None]
  - IRON OVERLOAD [None]
  - NEUROPATHY PERIPHERAL [None]
  - NO THERAPEUTIC RESPONSE [None]
  - SPLENOMEGALY [None]
